FAERS Safety Report 6316403-4 (Version None)
Quarter: 2009Q3

REPORT INFORMATION
  Report Type: 
  Country: None (occurrence: None)
  Receive Date: 20090820
  Receipt Date: 20090810
  Transmission Date: 20100115
  Serious: Yes (Other)
  Sender: FDA-Public Use
  Company Number: B0589250A

PATIENT
  Age: 34 Year
  Sex: Female

DRUGS (2)
  1. AMOXICILLIN TRIHYDRATE [Suspect]
     Indication: STREPTOCOCCAL INFECTION
     Route: 042
  2. CEFAZOLIN [Suspect]
     Route: 042

REACTIONS (10)
  - ABDOMINAL PAIN LOWER [None]
  - CAESAREAN SECTION [None]
  - DRUG EXPOSURE DURING PREGNANCY [None]
  - DRUG INEFFECTIVE [None]
  - NAUSEA [None]
  - PARAMETRIC ABSCESS [None]
  - PERITONITIS [None]
  - PYREXIA [None]
  - STREPTOCOCCAL INFECTION [None]
  - VAGINAL DISCHARGE [None]
